FAERS Safety Report 9276977 (Version 1)
Quarter: 2013Q2

REPORT INFORMATION
  Report Type: Spontaneous
  Country: US (occurrence: US)
  Receive Date: 20130507
  Receipt Date: 20130507
  Transmission Date: 20140414
  Serious: Yes (Disabling)
  Sender: FDA-Public Use
  Company Number: US-PFIZER INC-2013141042

PATIENT
  Sex: Female

DRUGS (2)
  1. PREVACID SOLUTAB [Suspect]
     Indication: DYSPEPSIA
     Dosage: 15MG, UNK
     Route: 048
  2. PROTONIX [Suspect]
     Indication: DYSPEPSIA
     Dosage: 20MG, UNK

REACTIONS (3)
  - Activities of daily living impaired [Unknown]
  - Feeling abnormal [Unknown]
  - Drug ineffective [Unknown]
